FAERS Safety Report 4835421-6 (Version None)
Quarter: 2005Q4

REPORT INFORMATION
  Report Type: 
  Country: None (occurrence: None)
  Receive Date: 20051117
  Receipt Date: 20051107
  Transmission Date: 20060501
  Serious: Yes (Death)
  Sender: FDA-Public Use
  Company Number: B0399937A

PATIENT
  Age: 59 Year
  Sex: Male

DRUGS (9)
  1. AMOXICILLIN TRIHYDRATE               (GENERIC) [Suspect]
     Indication: ERYTHEMA
     Dosage: 500 MG / THREE TIMES PER DAY /
     Dates: start: 20030705
  2. AUGMENTIN '250' [Suspect]
     Indication: CELLULITIS
     Dosage: TWICE PER DAY
     Dates: start: 20030606
  3. ATENOLOL [Concomitant]
  4. TRIAMTERENE AND HYDROCHLOROTHIAZIDE [Concomitant]
  5. HYDROCODONE + PARACETAMOL [Concomitant]
  6. ATORVASTATIN CALCIUM [Concomitant]
  7. TESTOSTERONE [Concomitant]
  8. NAPROXEN [Concomitant]
  9. SILDENAFIL CITRATE [Concomitant]

REACTIONS (11)
  - COAGULOPATHY [None]
  - EXFOLIATIVE RASH [None]
  - HAEMODIALYSIS [None]
  - HEPATIC ENCEPHALOPATHY [None]
  - HEPATIC FAILURE [None]
  - HEPATIC NECROSIS [None]
  - HEPATIC TRAUMA [None]
  - HEPATITIS ACUTE [None]
  - HYPOTENSION [None]
  - MULTI-ORGAN FAILURE [None]
  - RESPIRATORY FAILURE [None]
